FAERS Safety Report 15429903 (Version 2)
Quarter: 2018Q4

REPORT INFORMATION
  Report Type: Report from Study
  Country: US (occurrence: US)
  Receive Date: 20180926
  Receipt Date: 20181002
  Transmission Date: 20190204
  Serious: Yes (Other)
  Sender: FDA-Public Use
  Company Number: US-SAKK-2018SA260696AA

PATIENT
  Age: 70 Year
  Sex: Female

DRUGS (1)
  1. INSULIN GLARGINE [Suspect]
     Active Substance: INSULIN GLARGINE
     Indication: TYPE 2 DIABETES MELLITUS
     Dosage: 24 U, HS

REACTIONS (6)
  - Blood glucose increased [Recovered/Resolved]
  - Underdose [Unknown]
  - Macular degeneration [Not Recovered/Not Resolved]
  - Wrong technique in product usage process [Unknown]
  - Device operational issue [Unknown]
  - Cataract [Recovered/Resolved]
